FAERS Safety Report 12228365 (Version 1)
Quarter: 2016Q1

REPORT INFORMATION
  Report Type: Spontaneous
  Country: US (occurrence: None)
  Receive Date: 20160330
  Receipt Date: 20160330
  Transmission Date: 20160526
  Serious: Yes (Other)
  Sender: FDA-Public Use
  Company Number: None

PATIENT
  Age: 39 Year
  Sex: Female

DRUGS (5)
  1. MYLAN-LAMOTRIGINE 200MG [Suspect]
     Active Substance: LAMOTRIGINE
     Indication: BIPOLAR II DISORDER
     Route: 048
     Dates: start: 20160316
  2. KLONOPIN [Concomitant]
     Active Substance: CLONAZEPAM
  3. LAMOTRIGINE 200MG CADISTA [Suspect]
     Active Substance: LAMOTRIGINE
     Indication: BIPOLAR II DISORDER
     Route: 048
  4. RISPERDAL [Concomitant]
     Active Substance: RISPERIDONE
  5. ATIVAN [Concomitant]
     Active Substance: LORAZEPAM

REACTIONS (6)
  - Mania [None]
  - Product substitution issue [None]
  - Depression [None]
  - Suicidal ideation [None]
  - Bipolar II disorder [None]
  - Mood altered [None]

NARRATIVE: CASE EVENT DATE: 20160316
